FAERS Safety Report 22073348 (Version 3)
Quarter: 2023Q2

REPORT INFORMATION
  Report Type: Spontaneous
  Country: US (occurrence: US)
  Receive Date: 20230308
  Receipt Date: 20230512
  Transmission Date: 20230722
  Serious: No
  Sender: FDA-Public Use
  Company Number: US-JNJFOC-20230307788

PATIENT
  Age: 8 Decade
  Sex: Male
  Weight: 113.50 kg

DRUGS (14)
  1. STELARA [Suspect]
     Active Substance: USTEKINUMAB
     Indication: Colitis ulcerative
     Route: 058
     Dates: start: 202203
  2. STELARA [Suspect]
     Active Substance: USTEKINUMAB
  3. CREON [Concomitant]
     Active Substance: PANCRELIPASE AMYLASE\PANCRELIPASE LIPASE\PANCRELIPASE PROTEASE
  4. MESALAMINE [Concomitant]
     Active Substance: MESALAMINE
  5. ASPIRIN [Concomitant]
     Active Substance: ASPIRIN
  6. CARVEDILOL [Concomitant]
     Active Substance: CARVEDILOL
  7. PREDNISONE [Concomitant]
     Active Substance: PREDNISONE
  8. ALFUZOSIN [Concomitant]
     Active Substance: ALFUZOSIN
  9. ATORVASTATIN [Concomitant]
     Active Substance: ATORVASTATIN
  10. CO Q 10 [UBIDECARENONE] [Concomitant]
  11. IRON [Concomitant]
     Active Substance: IRON
  12. VITAMIN E [Concomitant]
     Active Substance: .ALPHA.-TOCOPHEROL
  13. VITAMINS [Concomitant]
     Active Substance: VITAMINS
  14. PROBIOTICS NOS [Concomitant]
     Active Substance: PROBIOTICS NOS

REACTIONS (3)
  - Product dose omission issue [Unknown]
  - Product label issue [Unknown]
  - Drug ineffective [Unknown]
